FAERS Safety Report 20698380 (Version 2)
Quarter: 2022Q2

REPORT INFORMATION
  Report Type: Spontaneous
  Country: US (occurrence: US)
  Receive Date: 20220412
  Receipt Date: 20220427
  Transmission Date: 20220721
  Serious: Yes (Other)
  Sender: FDA-Public Use
  Company Number: US-AMGEN-USASP2022059271

PATIENT
  Sex: Male

DRUGS (3)
  1. EPOGEN [Suspect]
     Active Substance: ERYTHROPOIETIN
     Indication: Chronic kidney disease
     Dosage: 3800 UNIT
     Route: 065
  2. EPOGEN [Suspect]
     Active Substance: ERYTHROPOIETIN
     Indication: Anaemia
  3. PROCRIT [Suspect]
     Active Substance: ERYTHROPOIETIN
     Indication: Product used for unknown indication
     Dosage: UNK
     Route: 065

REACTIONS (11)
  - Anaemia [Unknown]
  - Adverse drug reaction [Unknown]
  - Drug ineffective [Unknown]
  - Dermatitis acneiform [Unknown]
  - Blood blister [Unknown]
  - Body temperature increased [Unknown]
  - Contusion [Unknown]
  - Confusional state [Unknown]
  - Arthralgia [Unknown]
  - Skin exfoliation [Unknown]
  - Impaired quality of life [Unknown]
